FAERS Safety Report 24741900 (Version 1)
Quarter: 2024Q4

REPORT INFORMATION
  Report Type: Spontaneous
  Country: US (occurrence: None)
  Receive Date: 20241213
  Receipt Date: 20241213
  Transmission Date: 20250115
  Serious: Yes (Other)
  Sender: Public
  Company Number: None

PATIENT
  Age: 60 Year
  Sex: Female
  Weight: 67.5 kg

DRUGS (4)
  1. ESTRADIOL VAGINAL [Suspect]
     Active Substance: ESTRADIOL
     Indication: Vulvovaginal dryness
     Dosage: 1 GRAM AT BEDTIME VAGINAL?
     Route: 067
     Dates: start: 20241105, end: 20241112
  2. levothyroxine Sodium (112MCG) [Concomitant]
  3. Vitamin D3 (2000 IU) [Concomitant]
  4. ZYRTEC [Concomitant]
     Active Substance: CETIRIZINE HYDROCHLORIDE

REACTIONS (4)
  - Dysmenorrhoea [None]
  - Abdominal distension [None]
  - Syncope [None]
  - Vomiting [None]

NARRATIVE: CASE EVENT DATE: 20241113
